FAERS Safety Report 5336141-4 (Version None)
Quarter: 2007Q1

REPORT INFORMATION
  Report Type: 
  Country: None (occurrence: None)
  Receive Date: 20070302
  Receipt Date: 20061205
  Transmission Date: 20070707
  Serious: No
  Sender: FDA-Public Use
  Company Number: PHEH2006US14950

PATIENT
  Age: 71 Year
  Sex: Male

DRUGS (1)
  1. ENABLEX [Suspect]
     Indication: URINARY INCONTINENCE
     Dosage: 75 MG, QD

REACTIONS (2)
  - COUGH [None]
  - DRY MOUTH [None]
